FAERS Safety Report 19853712 (Version 1)
Quarter: 2021Q3

REPORT INFORMATION
  Report Type: Spontaneous
  Country: CN (occurrence: CN)
  Receive Date: 20210919
  Receipt Date: 20210919
  Transmission Date: 20211014
  Serious: Yes (Hospitalization, Other)
  Sender: FDA-Public Use
  Company Number: CN-BAXTER-2021BAX029020

PATIENT
  Age: 43 Year
  Sex: Male
  Weight: 70 kg

DRUGS (7)
  1. KAIFEN [FLURBIPROFEN AXETIL] [Suspect]
     Active Substance: FLURBIPROFEN AXETIL
     Indication: SPINAL CORD INJURY
     Route: 041
     Dates: start: 20210829, end: 20210831
  2. METHYLPREDNISOLONE. [Suspect]
     Active Substance: METHYLPREDNISOLONE
     Indication: SPINAL CORD INJURY
     Route: 041
     Dates: start: 20210829, end: 20210831
  3. ALPRAZOLAM. [Suspect]
     Active Substance: ALPRAZOLAM
     Indication: SPINAL CORD INJURY
     Dosage: TABETS
     Route: 048
     Dates: start: 20210828, end: 20210904
  4. 20% MANNITOL INJECTION [Suspect]
     Active Substance: MANNITOL
     Indication: SPINAL CORD INJURY
     Route: 041
     Dates: start: 20210828, end: 20210831
  5. NEUROTROPIN [Suspect]
     Active Substance: NEUROTROPIN
     Indication: SPINAL CORD INJURY
     Dosage: TABLETS
     Route: 048
     Dates: start: 20210828, end: 20210908
  6. SODIUM CHLORIDE. [Suspect]
     Active Substance: SODIUM CHLORIDE
     Indication: MEDICATION DILUTION
     Route: 041
     Dates: start: 20210829, end: 20210831
  7. ASIMEI [Suspect]
     Active Substance: METHOXYPHENAMINE
     Indication: COUGH
     Route: 048
     Dates: start: 20210831, end: 20210905

REACTIONS (2)
  - Hepatic function abnormal [Recovering/Resolving]
  - Drug-induced liver injury [Unknown]

NARRATIVE: CASE EVENT DATE: 20210831
